FAERS Safety Report 13593383 (Version 1)
Quarter: 2017Q2

REPORT INFORMATION
  Report Type: Spontaneous
  Country: US (occurrence: US)
  Receive Date: 20170530
  Receipt Date: 20170530
  Transmission Date: 20170830
  Serious: Yes (Other)
  Sender: FDA-Public Use
  Company Number: US-NORTH CREEK PHARMACEUTICALS LLC-2017VTS00628

PATIENT
  Age: 15 Year
  Sex: Male
  Weight: 50.8 kg

DRUGS (10)
  1. TRANEXAMIC ACID. [Suspect]
     Active Substance: TRANEXAMIC ACID
     Dosage: 5 MG/KG BOLUS
     Route: 065
  2. FENTANYL. [Concomitant]
     Active Substance: FENTANYL
     Route: 065
  3. ROCURONIUM [Concomitant]
     Active Substance: ROCURONIUM BROMIDE
     Route: 065
  4. TRANEXAMIC ACID. [Suspect]
     Active Substance: TRANEXAMIC ACID
     Dosage: 5 MG/KG/HOUR INFUSION
     Route: 065
  5. TRANEXAMIC ACID. [Suspect]
     Active Substance: TRANEXAMIC ACID
     Dosage: UNK, ONCE
     Route: 023
  6. PROPOFOL. [Concomitant]
     Active Substance: PROPOFOL
     Route: 065
  7. CEFAZOLIN [Concomitant]
     Active Substance: CEFAZOLIN
     Dosage: 20 MG/KG, UNK
     Route: 065
  8. KETAMINE [Concomitant]
     Active Substance: KETAMINE
     Dosage: 5 MG/KG, 1X/HOUR
     Route: 042
  9. PROPOFOL. [Concomitant]
     Active Substance: PROPOFOL
     Dosage: 200 ?G/KG/MIN
     Route: 042
  10. REMIFENTANYL [Concomitant]
     Active Substance: REMIFENTANIL
     Dosage: 0.2 ?G/KG/MIN
     Route: 042

REACTIONS (1)
  - Anaphylactic reaction [Recovered/Resolved]
